FAERS Safety Report 9350384 (Version 4)
Quarter: 2013Q3

REPORT INFORMATION
  Report Type: Spontaneous
  Country: GB (occurrence: GB)
  Receive Date: 20130617
  Receipt Date: 20130724
  Transmission Date: 20140515
  Serious: Yes (Hospitalization)
  Sender: FDA-Public Use
  Company Number: GB-JNJFOC-20130606652

PATIENT
  Age: 67 Year
  Sex: Female

DRUGS (13)
  1. DOXORUBICIN [Suspect]
     Indication: PRODUCT USED FOR UNKNOWN INDICATION
     Route: 042
  2. DOXORUBICIN [Suspect]
     Indication: PRODUCT USED FOR UNKNOWN INDICATION
     Route: 065
  3. RITUXIMAB [Suspect]
     Indication: PRODUCT USED FOR UNKNOWN INDICATION
     Dosage: 645
     Route: 065
     Dates: start: 20130529
  4. CYCLOPHOSPHAMIDE [Suspect]
     Indication: PRODUCT USED FOR UNKNOWN INDICATION
     Dosage: 1300
     Route: 065
  5. VINCRISTINE [Suspect]
     Indication: PRODUCT USED FOR UNKNOWN INDICATION
     Route: 065
  6. BORTEZOMIB [Suspect]
     Indication: PRODUCT USED FOR UNKNOWN INDICATION
     Route: 065
  7. PREDNISOLONE [Suspect]
     Indication: PRODUCT USED FOR UNKNOWN INDICATION
     Dosage: 100
     Route: 065
  8. DOMPERIDONE [Concomitant]
     Route: 048
     Dates: start: 20130528
  9. FLUCONAZOLE [Concomitant]
     Dosage: 100
     Route: 048
     Dates: start: 20130524
  10. ALLOPURINOL [Concomitant]
     Dosage: 300
     Route: 048
     Dates: start: 20130525
  11. COTRIMOXAZOLE [Concomitant]
     Dosage: 480
     Route: 048
     Dates: start: 20130529
  12. ACYCLOVIR [Concomitant]
     Dosage: 600
     Route: 048
     Dates: start: 20130524
  13. OMEPRAZOLE [Concomitant]
     Dosage: 20
     Route: 048
     Dates: start: 20130518

REACTIONS (2)
  - Urinary tract infection [Not Recovered/Not Resolved]
  - Pollakiuria [Not Recovered/Not Resolved]
